FAERS Safety Report 7107780-5 (Version None)
Quarter: 2010Q4

REPORT INFORMATION
  Report Type: 
  Country: None (occurrence: None)
  Receive Date: 20101117
  Receipt Date: 20101104
  Transmission Date: 20110411
  Serious: Yes (Other)
  Sender: FDA-Public Use
  Company Number: PHHY2010CA73650

PATIENT
  Sex: Female

DRUGS (4)
  1. ACLASTA [Suspect]
     Indication: OSTEOPOROSIS
     Dosage: 5 MG
     Route: 042
     Dates: start: 20091129
  2. ESTROGEL [Concomitant]
  3. PROMETRIUM [Concomitant]
  4. CARBOCAL [Concomitant]

REACTIONS (4)
  - APTYALISM [None]
  - DRY EYE [None]
  - DRY MOUTH [None]
  - DRY THROAT [None]
